FAERS Safety Report 5362048-2 (Version None)
Quarter: 2007Q2

REPORT INFORMATION
  Report Type: 
  Country: None (occurrence: None)
  Receive Date: 20070619
  Receipt Date: 20070608
  Transmission Date: 20071010
  Serious: Yes (Hospitalization)
  Sender: FDA-Public Use
  Company Number: GB-AMGEN-US226397

PATIENT

DRUGS (1)
  1. ENBREL [Suspect]
     Indication: RHEUMATOID ARTHRITIS
     Dosage: 50MG, FREQUENCY UNSPECIFIED
     Route: 058
     Dates: start: 20070426, end: 20070511

REACTIONS (5)
  - CONDITION AGGRAVATED [None]
  - FATIGUE [None]
  - INJECTION SITE PAIN [None]
  - INJECTION SITE URTICARIA [None]
  - RHEUMATOID ARTHRITIS [None]
